FAERS Safety Report 26055286 (Version 2)
Quarter: 2025Q4

REPORT INFORMATION
  Report Type: Spontaneous
  Country: EU (occurrence: EU)
  Receive Date: 20251117
  Receipt Date: 20251222
  Transmission Date: 20260117
  Serious: Yes (Other)
  Sender: MYLAN
  Company Number: EU-VELOXIS PHARMACEUTICALS, INC.-2022-VEL-00681

PATIENT
  Age: 81 Year
  Sex: Male

DRUGS (20)
  1. TACROLIMUS [Suspect]
     Active Substance: TACROLIMUS
     Indication: Prophylaxis against transplant rejection
     Dosage: UNK
  2. TACROLIMUS [Suspect]
     Active Substance: TACROLIMUS
     Indication: Immunosuppressant drug therapy
     Dosage: UNK
     Route: 065
  3. TACROLIMUS [Suspect]
     Active Substance: TACROLIMUS
     Dosage: UNK
     Route: 065
  4. TACROLIMUS [Suspect]
     Active Substance: TACROLIMUS
     Dosage: UNK
  5. MYCOPHENOLATE MOFETIL [Suspect]
     Active Substance: MYCOPHENOLATE MOFETIL
     Indication: Prophylaxis against transplant rejection
     Dosage: UNK
  6. MYCOPHENOLATE MOFETIL [Suspect]
     Active Substance: MYCOPHENOLATE MOFETIL
     Indication: Immunosuppressant drug therapy
     Dosage: UNK
     Route: 065
  7. MYCOPHENOLATE MOFETIL [Suspect]
     Active Substance: MYCOPHENOLATE MOFETIL
     Dosage: UNK
     Route: 065
  8. MYCOPHENOLATE MOFETIL [Suspect]
     Active Substance: MYCOPHENOLATE MOFETIL
     Dosage: UNK
  9. EVEROLIMUS [Suspect]
     Active Substance: EVEROLIMUS
     Indication: Prophylaxis against transplant rejection
     Dosage: UNK
  10. EVEROLIMUS [Suspect]
     Active Substance: EVEROLIMUS
     Indication: Immunosuppressant drug therapy
     Dosage: UNK
     Route: 065
  11. EVEROLIMUS [Suspect]
     Active Substance: EVEROLIMUS
     Dosage: UNK
     Route: 065
  12. EVEROLIMUS [Suspect]
     Active Substance: EVEROLIMUS
     Dosage: UNK
  13. PREDNISONE [Suspect]
     Active Substance: PREDNISONE
     Indication: Prophylaxis against transplant rejection
     Dosage: UNK
  14. PREDNISONE [Suspect]
     Active Substance: PREDNISONE
     Indication: Immunosuppressant drug therapy
     Dosage: UNK
     Route: 065
  15. PREDNISONE [Suspect]
     Active Substance: PREDNISONE
     Dosage: UNK
     Route: 065
  16. PREDNISONE [Suspect]
     Active Substance: PREDNISONE
     Dosage: UNK
  17. THYMOCYTE IMMUNE GLOBULIN NOS [Suspect]
     Active Substance: THYMOCYTE IMMUNE GLOBULIN NOS
     Indication: Immunosuppressant drug therapy
     Dosage: UNK
  18. THYMOCYTE IMMUNE GLOBULIN NOS [Suspect]
     Active Substance: THYMOCYTE IMMUNE GLOBULIN NOS
     Dosage: UNK
     Route: 065
  19. THYMOCYTE IMMUNE GLOBULIN NOS [Suspect]
     Active Substance: THYMOCYTE IMMUNE GLOBULIN NOS
     Dosage: UNK
     Route: 065
  20. THYMOCYTE IMMUNE GLOBULIN NOS [Suspect]
     Active Substance: THYMOCYTE IMMUNE GLOBULIN NOS
     Dosage: UNK

REACTIONS (5)
  - Nephropathy toxic [Recovering/Resolving]
  - Cytomegalovirus infection [Unknown]
  - Nephrocalcinosis [Recovering/Resolving]
  - Off label use [Recovering/Resolving]
  - BK virus infection [Recovering/Resolving]
